FAERS Safety Report 9734143 (Version 2)
Quarter: 2014Q2

REPORT INFORMATION
  Report Type: Spontaneous
  Country: JP (occurrence: JP)
  Receive Date: 20131205
  Receipt Date: 20140403
  Transmission Date: 20141212
  Serious: Yes (Hospitalization)
  Sender: FDA-Public Use
  Company Number: JP-BAYER-2013-146300

PATIENT
  Age: 11 Month
  Sex: Male

DRUGS (1)
  1. ACETYLSALICYLIC ACID({=100 MG) [Suspect]
     Indication: KAWASAKI^S DISEASE
     Dosage: 40 MG/KG, DAILY DOSE
     Route: 048

REACTIONS (1)
  - Histiocytosis haematophagic [Recovering/Resolving]
